FAERS Safety Report 4522408-6 (Version None)
Quarter: 2004Q4

REPORT INFORMATION
  Report Type: 
  Country: None (occurrence: None)
  Receive Date: 20041207
  Receipt Date: 20041119
  Transmission Date: 20050328
  Serious: Yes (Death, Hospitalization, Other)
  Sender: FDA-Public Use
  Company Number: USA040876003

PATIENT
  Age: 66 Year
  Sex: Female

DRUGS (1)
  1. HUMATROPE [Suspect]
     Indication: GROWTH HORMONE DEFICIENCY
     Dosage: 0.3 MG/1 DAY
     Dates: start: 20030620

REACTIONS (2)
  - CARCINOMA [None]
  - FULL BLOOD COUNT DECREASED [None]
